FAERS Safety Report 7329124-6 (Version None)
Quarter: 2011Q1

REPORT INFORMATION
  Report Type: 
  Country: None (occurrence: None)
  Receive Date: 20110303
  Receipt Date: 20110222
  Transmission Date: 20110831
  Serious: Yes (Hospitalization)
  Sender: FDA-Public Use
  Company Number: GB-ASTRAZENECA-2011SE11193

PATIENT
  Age: 31 Year
  Sex: Female

DRUGS (4)
  1. BETA-LACTAMASE SENSITIVE PENICILLINS [Concomitant]
  2. METRONIDAZOLE [Concomitant]
  3. OMEPRAZOLE [Suspect]
     Indication: ABDOMINAL PAIN UPPER
     Route: 048
     Dates: start: 20110110, end: 20110115
  4. OMEPRAZOLE [Suspect]
     Indication: GASTROOESOPHAGEAL REFLUX DISEASE
     Route: 048
     Dates: start: 20110110, end: 20110115

REACTIONS (2)
  - HEPATITIS [None]
  - ABDOMINAL PAIN UPPER [None]
